FAERS Safety Report 21762517 (Version 1)
Quarter: 2022Q4

REPORT INFORMATION
  Report Type: Spontaneous
  Country: US (occurrence: US)
  Receive Date: 20221221
  Receipt Date: 20221221
  Transmission Date: 20230112
  Serious: No
  Sender: FDA-Public Use
  Company Number: US-ABBVIE-4239005

PATIENT
  Sex: Male

DRUGS (3)
  1. MAVYRET [Suspect]
     Active Substance: GLECAPREVIR\PIBRENTASVIR
     Indication: Hepatitis C
     Route: 048
  2. TACROLIMUS [Concomitant]
     Active Substance: TACROLIMUS
     Indication: Hepatitis C
     Dosage: UNKNOWN
  3. TACROLIMUS [Concomitant]
     Active Substance: TACROLIMUS
     Indication: Hepatitis C
     Dosage: INCREASED

REACTIONS (1)
  - Leukopenia [Unknown]
